FAERS Safety Report 18528557 (Version 1)
Quarter: 2020Q4

REPORT INFORMATION
  Report Type: Spontaneous
  Country: CA (occurrence: CA)
  Receive Date: 20201120
  Receipt Date: 20201120
  Transmission Date: 20210114
  Serious: Yes (Hospitalization)
  Sender: FDA-Public Use
  Company Number: CA-JNJFOC-20201122297

PATIENT
  Age: 52 Year
  Sex: Female

DRUGS (30)
  1. PARACETAMOL [Suspect]
     Active Substance: ACETAMINOPHEN
     Indication: PAIN IN EXTREMITY
     Route: 048
  2. OLANZAPINE. [Suspect]
     Active Substance: OLANZAPINE
     Route: 048
  3. CALCIUM CARBONATE. [Concomitant]
     Active Substance: CALCIUM CARBONATE
  4. CHLORAL HYDRATE [Concomitant]
     Active Substance: CHLORAL HYDRATE
  5. ABACAVIR. [Concomitant]
     Active Substance: ABACAVIR
     Route: 065
  6. OLANZAPINE. [Suspect]
     Active Substance: OLANZAPINE
     Indication: PSYCHOTIC DISORDER
     Route: 048
  7. PROCYCLIDINE HYDROCHLORIDE [Suspect]
     Active Substance: PROCYCLIDINE HYDROCHLORIDE
     Indication: PROPHYLAXIS
     Route: 048
  8. ENFUVIRTIDE. [Concomitant]
     Active Substance: ENFUVIRTIDE
  9. 3TC [Concomitant]
     Active Substance: LAMIVUDINE
  10. SERTRALINE [Concomitant]
     Active Substance: SERTRALINE HYDROCHLORIDE
     Route: 065
  11. BENADRYL [Concomitant]
     Active Substance: DIPHENHYDRAMINE HYDROCHLORIDE
  12. DIAZEPAM. [Suspect]
     Active Substance: DIAZEPAM
     Route: 065
  13. PROCYCLIDINE HYDROCHLORIDE [Suspect]
     Active Substance: PROCYCLIDINE HYDROCHLORIDE
     Indication: MUSCULOSKELETAL STIFFNESS
  14. CLONAZEPAM. [Suspect]
     Active Substance: CLONAZEPAM
     Indication: HYPOMANIA
     Route: 048
  15. TEGRETOL [Suspect]
     Active Substance: CARBAMAZEPINE
     Indication: HYPOMANIA
     Route: 065
  16. APTIVUS [Suspect]
     Active Substance: TIPRANAVIR
     Indication: HIV INFECTION
     Route: 048
  17. NYSTATIN. [Concomitant]
     Active Substance: NYSTATIN
  18. KALETRA [Concomitant]
     Active Substance: LOPINAVIR\RITONAVIR
  19. LITHIUM. [Concomitant]
     Active Substance: LITHIUM
  20. DIAZEPAM. [Suspect]
     Active Substance: DIAZEPAM
     Route: 048
  21. TRAZODONE [Suspect]
     Active Substance: TRAZODONE HYDROCHLORIDE
     Indication: DEPRESSION
     Route: 048
  22. TRAZODONE [Suspect]
     Active Substance: TRAZODONE HYDROCHLORIDE
     Route: 048
  23. IMODIUM [Concomitant]
     Active Substance: LOPERAMIDE HYDROCHLORIDE
  24. LACTULOSE. [Concomitant]
     Active Substance: LACTULOSE
     Route: 065
  25. RISPERDAL [Suspect]
     Active Substance: RISPERIDONE
     Indication: PSYCHOTIC DISORDER
     Route: 048
  26. DIAZEPAM. [Suspect]
     Active Substance: DIAZEPAM
     Indication: DEPRESSION
     Route: 048
  27. QUETIAPINE FUMARATE. [Suspect]
     Active Substance: QUETIAPINE FUMARATE
     Indication: PSYCHOTIC DISORDER
     Route: 048
  28. ATOVAQUONE PROGUANIL [Concomitant]
     Active Substance: ATOVAQUONE\PROGUANIL
     Route: 065
  29. BISACODYL. [Concomitant]
     Active Substance: BISACODYL
  30. T-20 [Concomitant]
     Active Substance: ENFUVIRTIDE

REACTIONS (12)
  - Hypomania [Unknown]
  - Hepatic enzyme increased [Unknown]
  - Pneumonia [Unknown]
  - Hepatotoxicity [Unknown]
  - Schizophrenia [Unknown]
  - Blood bilirubin increased [Unknown]
  - Condition aggravated [Unknown]
  - Jaundice cholestatic [Unknown]
  - Nausea [Unknown]
  - Vomiting [Unknown]
  - Cholelithiasis [Unknown]
  - Psychotic disorder [Unknown]
